FAERS Safety Report 25817831 (Version 2)
Quarter: 2025Q3

REPORT INFORMATION
  Report Type: Spontaneous
  Country: US (occurrence: US)
  Receive Date: 20250918
  Receipt Date: 20250930
  Transmission Date: 20251021
  Serious: Yes (Hospitalization, Other)
  Sender: TRIS PHARMA, INC.
  Company Number: US-TRIS PHARMA, INC.-25US012093

PATIENT

DRUGS (4)
  1. DYANAVEL XR [Suspect]
     Active Substance: AMPHETAMINE
     Indication: Maternal exposure during pregnancy
     Dosage: 10 MILLIGRAM, QD
  2. DYANAVEL XR [Suspect]
     Active Substance: AMPHETAMINE
     Dosage: 5 MILLIGRAM, QD
  3. FLUOXETINE [Suspect]
     Active Substance: FLUOXETINE HYDROCHLORIDE
     Indication: Product used for unknown indication
     Dosage: 20 MILLIGRAM, QD
     Route: 048
  4. FLUOXETINE [Suspect]
     Active Substance: FLUOXETINE HYDROCHLORIDE
     Route: 048

REACTIONS (4)
  - Premature delivery [Unknown]
  - Low birth weight baby [Unknown]
  - Maternal exposure during breast feeding [Unknown]
  - Foetal exposure during pregnancy [Unknown]

NARRATIVE: CASE EVENT DATE: 20250831
